FAERS Safety Report 15796974 (Version 1)
Quarter: 2019Q1

REPORT INFORMATION
  Report Type: Spontaneous
  Country: ES (occurrence: ES)
  Receive Date: 20190108
  Receipt Date: 20190108
  Transmission Date: 20190417
  Serious: Yes (Other)
  Sender: FDA-Public Use
  Company Number: ES-ROCHE-2240920

PATIENT
  Age: 66 Year
  Sex: Male
  Weight: 95.6 kg

DRUGS (6)
  1. MIRTAZAPINA [Concomitant]
     Active Substance: MIRTAZAPINE
     Route: 065
  2. DOBUTAMINA [Concomitant]
     Active Substance: DOBUTAMINE HYDROCHLORIDE
     Route: 065
  3. BLASTON [Concomitant]
     Route: 065
  4. PIPERACILLIN TAZOBACTAM KABI [Concomitant]
     Active Substance: PIPERACILLIN SODIUM\TAZOBACTAM SODIUM
     Route: 065
  5. QUETIAPINA [Concomitant]
     Active Substance: QUETIAPINE
     Route: 065
  6. GANCICLOVIR. [Suspect]
     Active Substance: GANCICLOVIR
     Indication: PRODUCT USED FOR UNKNOWN INDICATION
     Route: 065
     Dates: start: 20181005

REACTIONS (4)
  - Hallucination [Recovered/Resolved]
  - Nervousness [Recovered/Resolved]
  - Delirium [Recovered/Resolved]
  - Restlessness [Recovered/Resolved]

NARRATIVE: CASE EVENT DATE: 20181215
